FAERS Safety Report 9206314 (Version 1)
Quarter: 2013Q2

REPORT INFORMATION
  Report Type: Spontaneous
  Country: DE (occurrence: None)
  Receive Date: 20130401
  Receipt Date: 20130401
  Transmission Date: 20140414
  Serious: Yes (Other)
  Sender: FDA-Public Use
  Company Number: SYM-2013-02051

PATIENT
  Age: 39 Year
  Sex: Male

DRUGS (1)
  1. ELONTRIL [Suspect]
     Indication: PRODUCT USED FOR UNKNOWN INDICATION
     Route: 048
     Dates: start: 20130320, end: 20130320

REACTIONS (3)
  - Intentional overdose [None]
  - Suicide attempt [None]
  - Agitation [None]
